FAERS Safety Report 8353229-4 (Version None)
Quarter: 2012Q2

REPORT INFORMATION
  Report Type: 
  Country: None (occurrence: None)
  Receive Date: 20120511
  Receipt Date: 20120507
  Transmission Date: 20120825
  Serious: Yes (Death, Hospitalization)
  Sender: FDA-Public Use
  Company Number: ES-SANOFI-AVENTIS-2012SA032107

PATIENT
  Age: 70 Year
  Sex: Male

DRUGS (10)
  1. ALDACTONE [Interacting]
     Indication: ASCITES
     Route: 048
     Dates: start: 20110404, end: 20110412
  2. ALDACTONE [Interacting]
     Route: 048
     Dates: start: 20070101, end: 20110403
  3. PROPRANOLOL [Concomitant]
     Indication: VARICES OESOPHAGEAL
     Route: 048
     Dates: start: 20070101
  4. FUROSEMIDE [Suspect]
     Indication: ASCITES
     Route: 048
     Dates: start: 20110404, end: 20110412
  5. FUROSEMIDE [Interacting]
     Route: 048
     Dates: start: 20100126, end: 20110403
  6. ISOSORBIDE MONONITRATE [Concomitant]
  7. LACTITOL [Concomitant]
  8. INSULIN MIXTARD [Concomitant]
  9. NORFLOXACIN [Concomitant]
  10. OMEPRAZOLE [Concomitant]
     Indication: GASTRITIS PROPHYLAXIS
     Route: 048
     Dates: start: 20070101

REACTIONS (9)
  - DISORIENTATION [None]
  - JAUNDICE [None]
  - BLOOD CREATININE INCREASED [None]
  - ASTERIXIS [None]
  - HYPERKALAEMIA [None]
  - SOMNOLENCE [None]
  - RENAL FAILURE ACUTE [None]
  - HEPATIC ENCEPHALOPATHY [None]
  - DRUG INTERACTION [None]
